FAERS Safety Report 7375960-X (Version None)
Quarter: 2011Q1

REPORT INFORMATION
  Report Type: 
  Country: None (occurrence: None)
  Receive Date: 20110325
  Receipt Date: 20110321
  Transmission Date: 20110831
  Serious: Yes (Hospitalization)
  Sender: FDA-Public Use
  Company Number: FR-PFIZER INC-2011062797

PATIENT
  Sex: Male

DRUGS (4)
  1. PARACETAMOL [Suspect]
     Indication: PYREXIA
  2. PARACETAMOL [Suspect]
     Indication: HEADACHE
     Dosage: 1 G, 4X/DAY
     Route: 048
     Dates: start: 20110107, end: 20110109
  3. ADVIL LIQUI-GELS [Suspect]
     Indication: HEADACHE
     Dosage: 1 DF, 1X/DAY
     Route: 048
     Dates: start: 20110107, end: 20110109
  4. ADVIL LIQUI-GELS [Suspect]
     Indication: PYREXIA

REACTIONS (4)
  - APHTHOUS STOMATITIS [None]
  - RASH [None]
  - DYSPNOEA [None]
  - GENITAL LESION [None]
